FAERS Safety Report 6974731-3 (Version None)
Quarter: 2010Q3

REPORT INFORMATION
  Report Type: 
  Country: None (occurrence: None)
  Receive Date: 20100909
  Receipt Date: 20081203
  Transmission Date: 20110219
  Serious: No
  Sender: FDA-Public Use
  Company Number: US-WYE-H07096908

PATIENT
  Sex: Female
  Weight: 86.26 kg

DRUGS (3)
  1. PRISTIQ [Suspect]
     Indication: DEPRESSION
     Route: 048
     Dates: start: 20081125
  2. NORVASC [Concomitant]
  3. LASIX [Concomitant]

REACTIONS (4)
  - COORDINATION ABNORMAL [None]
  - FATIGUE [None]
  - FEELING ABNORMAL [None]
  - VISION BLURRED [None]
